FAERS Safety Report 9001197 (Version 1)
Quarter: 2013Q1

REPORT INFORMATION
  Report Type: Spontaneous
  Country: US (occurrence: US)
  Receive Date: 20130107
  Receipt Date: 20130107
  Transmission Date: 20140127
  Serious: Yes (Life-Threatening)
  Sender: FDA-Public Use
  Company Number: US-JNJFOC-20121213908

PATIENT
  Age: 40 Year
  Sex: Female

DRUGS (3)
  1. FENTANYL [Suspect]
     Indication: PRODUCT USED FOR UNKNOWN INDICATION
     Route: 062
  2. FIORICET [Suspect]
     Indication: PRODUCT USED FOR UNKNOWN INDICATION
     Dosage: AROUND 100 TABLETS
     Route: 065
  3. OXYCODONE [Suspect]
     Indication: PRODUCT USED FOR UNKNOWN INDICATION
     Route: 065

REACTIONS (9)
  - Intentional overdose [Unknown]
  - Metabolic acidosis [Unknown]
  - Convulsion [Unknown]
  - Substance use [Unknown]
  - Loss of consciousness [Unknown]
  - Chills [Unknown]
  - Skin warm [Unknown]
  - Dry skin [Unknown]
  - Increased upper airway secretion [Unknown]
